FAERS Safety Report 6865041 (Version 3)
Quarter: 2013Q2

REPORT INFORMATION
  Report Type: Spontaneous
  Country: US (occurrence: US)
  Receive Date: 20081223
  Receipt Date: 20130605
  Transmission Date: 20140414
  Serious: Yes (Death)
  Sender: FDA-Public Use
  Company Number: US-PFIZER INC-2008153717

PATIENT
  Sex: Male

DRUGS (4)
  1. GABAPENTIN [Suspect]
     Dosage: UNK
     Route: 048
     Dates: start: 2007
  2. ZOLPIDEM [Suspect]
     Dosage: UNK
     Route: 048
     Dates: start: 2007
  3. OXYCODONE HYDROCHLORIDE [Suspect]
     Dosage: UNK
     Route: 048
     Dates: start: 2007
  4. CYCLOBENZAPRINE [Suspect]
     Dosage: UNK
     Route: 048
     Dates: start: 2007

REACTIONS (3)
  - Completed suicide [Fatal]
  - Cardiac arrest [Fatal]
  - Respiratory arrest [Fatal]
